FAERS Safety Report 6771767-2 (Version None)
Quarter: 2010Q2

REPORT INFORMATION
  Report Type: 
  Country: None (occurrence: None)
  Receive Date: 20100616
  Receipt Date: 20090709
  Transmission Date: 20101027
  Serious: No
  Sender: FDA-Public Use
  Company Number: US-ASTRAZENECA-2009UW18927

PATIENT
  Age: 83 Year
  Sex: Female
  Weight: 81.6 kg

DRUGS (3)
  1. ATACAND [Suspect]
     Indication: HYPERTENSION
     Route: 048
  2. EXTRA STRENGTH TYLENOL [Suspect]
     Indication: ARTHRITIS
     Dates: start: 20090101
  3. EXTRA STRENGTH TYLENOL [Suspect]
     Indication: SCOLIOSIS
     Dates: start: 20090101

REACTIONS (2)
  - FATIGUE [None]
  - SOMNOLENCE [None]
